FAERS Safety Report 4970927-0 (Version None)
Quarter: 2006Q2

REPORT INFORMATION
  Report Type: 
  Country: None (occurrence: None)
  Receive Date: 20060412
  Receipt Date: 20060403
  Transmission Date: 20061013
  Serious: Yes (Life-Threatening, Hospitalization, Other)
  Sender: FDA-Public Use
  Company Number: GB-AVENTIS-200612045EU

PATIENT
  Age: 69 Year
  Sex: Female
  Weight: 65 kg

DRUGS (9)
  1. ENOXAPARIN SODIUM [Suspect]
  2. ASPIRIN [Suspect]
     Indication: MYOCARDIAL ISCHAEMIA
     Route: 048
     Dates: start: 19960101, end: 20060306
  3. ASPIRIN [Suspect]
     Indication: CORONARY ARTERY SURGERY
     Route: 048
     Dates: start: 19960101, end: 20060306
  4. CLOPIDOGREL [Suspect]
     Indication: CORONARY ARTERY SURGERY
     Dates: end: 20060306
  5. DICLOFENAC [Suspect]
     Route: 048
     Dates: end: 20060306
  6. ATENOLOL [Concomitant]
     Indication: MYOCARDIAL ISCHAEMIA
     Route: 048
  7. SIMVASTATIN [Concomitant]
     Indication: BLOOD CHOLESTEROL INCREASED
     Route: 048
  8. CO-DYDRAMOL [Concomitant]
     Indication: PAIN
     Route: 048
  9. AMOXICILLIN + CLAVULANATE POTASSIUM [Concomitant]
     Indication: INFECTION

REACTIONS (1)
  - DUODENAL ULCER PERFORATION [None]
